FAERS Safety Report 5429503-8 (Version None)
Quarter: 2007Q3

REPORT INFORMATION
  Report Type: 
  Country: None (occurrence: None)
  Receive Date: 20070829
  Receipt Date: 20070828
  Transmission Date: 20080115
  Serious: Yes (Other)
  Sender: FDA-Public Use
  Company Number: D0053396A

PATIENT
  Age: 47 Year
  Sex: Female
  Weight: 69.1 kg

DRUGS (3)
  1. ELONTRIL [Suspect]
     Route: 048
     Dates: start: 20070517, end: 20070531
  2. DIPIPERON [Concomitant]
     Indication: SLEEP DISORDER
     Dosage: 80MG AT NIGHT
     Route: 048
     Dates: start: 20070202
  3. PROPRANOLOL HYDROCHLORIDE [Concomitant]
     Dosage: 20MG THREE TIMES PER DAY
     Route: 048
     Dates: start: 20070202

REACTIONS (3)
  - ANTITHROMBIN III INCREASED [None]
  - COAGULOPATHY [None]
  - HAEMATOMA [None]
